FAERS Safety Report 11916506 (Version 3)
Quarter: 2018Q4

REPORT INFORMATION
  Report Type: Spontaneous
  Country: US (occurrence: US)
  Receive Date: 20160114
  Receipt Date: 20181221
  Transmission Date: 20190204
  Serious: Yes (Hospitalization, Other)
  Sender: FDA-Public Use
  Company Number: US-DSJP-DSU-2015-120120

PATIENT

DRUGS (3)
  1. BENICAR [Suspect]
     Active Substance: OLMESARTAN MEDOXOMIL
     Indication: HYPERTENSION
     Dosage: 5 MG, BID
     Dates: start: 20060829, end: 201508
  2. ENTECAVIR. [Concomitant]
     Active Substance: ENTECAVIR
     Indication: PRODUCT USED FOR UNKNOWN INDICATION
     Dosage: UNK
  3. BENICAR [Suspect]
     Active Substance: OLMESARTAN MEDOXOMIL
     Dosage: 20 MG, UNK
     Dates: start: 20060829, end: 201508

REACTIONS (14)
  - Cholecystitis acute [Recovered/Resolved]
  - Gastric ulcer [Unknown]
  - Sprue-like enteropathy [Recovering/Resolving]
  - Diverticulum intestinal [Unknown]
  - Constipation [Unknown]
  - Focal nodular hyperplasia [Unknown]
  - Biliary dyskinesia [Recovered/Resolved]
  - Bile duct stenosis [Not Recovered/Not Resolved]
  - Cholelithiasis [Recovered/Resolved]
  - Anxiety [Recovered/Resolved]
  - Haemorrhoids [Recovering/Resolving]
  - Rectal polyp [Unknown]
  - Barrett^s oesophagus [Recovering/Resolving]
  - Hepatic cirrhosis [Not Recovered/Not Resolved]

NARRATIVE: CASE EVENT DATE: 200609
